FAERS Safety Report 25487922 (Version 1)
Quarter: 2025Q2

REPORT INFORMATION
  Report Type: Report from Study
  Country: US (occurrence: US)
  Receive Date: 20250627
  Receipt Date: 20250627
  Transmission Date: 20250717
  Serious: Yes (Hospitalization)
  Sender: TAKEDA
  Company Number: US-TAKEDA-2025TUS047215

PATIENT
  Sex: Female
  Weight: 52 kg

DRUGS (17)
  1. LANADELUMAB [Suspect]
     Active Substance: LANADELUMAB
     Indication: Immune system disorder
     Dosage: 300 MILLIGRAM, Q2WEEKS
  2. LANADELUMAB [Suspect]
     Active Substance: LANADELUMAB
  3. LANADELUMAB [Suspect]
     Active Substance: LANADELUMAB
  4. FIRAZYR [Suspect]
     Active Substance: ICATIBANT ACETATE
     Indication: Immune system disorder
  5. FIRAZYR [Suspect]
     Active Substance: ICATIBANT ACETATE
  6. AMLODIPINE BESYLATE [Concomitant]
     Active Substance: AMLODIPINE BESYLATE
  7. TRESIBA [Concomitant]
     Active Substance: INSULIN DEGLUDEC
  8. HUMALOG [Concomitant]
     Active Substance: INSULIN LISPRO
  9. WARFARIN SODIUM [Concomitant]
     Active Substance: WARFARIN SODIUM
  10. ALBUTEROL SULFATE [Concomitant]
     Active Substance: ALBUTEROL SULFATE
  11. ALBUTEROL SULFATE [Concomitant]
     Active Substance: ALBUTEROL SULFATE
  12. LEVAMLODIPINE MALEATE [Concomitant]
     Active Substance: LEVAMLODIPINE MALEATE
  13. OXYGEN [Concomitant]
     Active Substance: OXYGEN
  14. CALCIUM ACETATE [Concomitant]
     Active Substance: CALCIUM ACETATE
  15. TRAZODONE HCL [Concomitant]
     Active Substance: TRAZODONE HYDROCHLORIDE
  16. TRIKAFTA [Concomitant]
     Active Substance: ELEXACAFTOR\IVACAFTOR\TEZACAFTOR
  17. ZENPEP [Concomitant]
     Active Substance: PANCRELIPASE AMYLASE\PANCRELIPASE LIPASE\PANCRELIPASE PROTEASE

REACTIONS (1)
  - Hereditary angioedema [Unknown]
